FAERS Safety Report 16760300 (Version 1)
Quarter: 2019Q3

REPORT INFORMATION
  Report Type: Spontaneous
  Country: US (occurrence: US)
  Receive Date: 20190830
  Receipt Date: 20190830
  Transmission Date: 20191005
  Serious: No
  Sender: FDA-Public Use
  Company Number: US-PRINSTON PHARMACEUTICAL INC.-2019PRN00699

PATIENT
  Sex: Female
  Weight: 86.17 kg

DRUGS (2)
  1. DULOXETINE. [Suspect]
     Active Substance: DULOXETINE
     Indication: DEPRESSION
     Dosage: 60 MG, 1X/DAY ^AT NIGHT^
     Route: 048
     Dates: start: 201803, end: 2018
  2. ADDERALL [Concomitant]
     Active Substance: AMPHETAMINE ASPARTATE\AMPHETAMINE SULFATE\DEXTROAMPHETAMINE SACCHARATE\DEXTROAMPHETAMINE SULFATE
     Dosage: UNK
     Dates: start: 1999

REACTIONS (8)
  - Crying [Recovered/Resolved]
  - Product substitution issue [Recovered/Resolved]
  - Mood swings [Recovered/Resolved]
  - Somnolence [Recovering/Resolving]
  - Migraine [Recovered/Resolved]
  - Drug ineffective [Recovered/Resolved]
  - Fatigue [Recovering/Resolving]
  - Dizziness [Recovered/Resolved]

NARRATIVE: CASE EVENT DATE: 2018
